FAERS Safety Report 15195964 (Version 1)
Quarter: 2018Q3

REPORT INFORMATION
  Report Type: Spontaneous
  Country: US (occurrence: US)
  Receive Date: 20180725
  Receipt Date: 20180725
  Transmission Date: 20181010
  Serious: Yes (Life-Threatening, Other)
  Sender: FDA-Public Use
  Company Number: US-AUROBINDO-AUR-APL-2018-036714

PATIENT
  Age: 44 Year
  Sex: Male

DRUGS (2)
  1. PACLITAXEL. [Suspect]
     Active Substance: PACLITAXEL
     Indication: METASTASES TO PLEURA
     Dosage: ()CYCLICAL
     Route: 065
  2. CARBOPLATIN. [Suspect]
     Active Substance: CARBOPLATIN
     Indication: ADENOCARCINOMA
     Dosage: ()CYCLICAL
     Route: 065

REACTIONS (4)
  - Condition aggravated [Recovering/Resolving]
  - Pleural effusion [Recovering/Resolving]
  - Respiratory distress [Recovering/Resolving]
  - Drug ineffective [Unknown]
